FAERS Safety Report 8610654 (Version 7)
Quarter: 2014Q3

REPORT INFORMATION
  Report Type: Report from Study
  Country: US (occurrence: US)
  Receive Date: 20120612
  Receipt Date: 20140909
  Transmission Date: 20150326
  Serious: Yes (Hospitalization)
  Sender: FDA-Public Use
  Company Number: US-ALEXION PHARMACEUTICALS INC.-A201201131

PATIENT

DRUGS (16)
  1. SOLIRIS [Suspect]
     Active Substance: ECULIZUMAB
     Dosage: 600 MG, SINGLE
     Route: 042
     Dates: start: 20120405, end: 20120405
  2. SOLIRIS [Suspect]
     Active Substance: ECULIZUMAB
     Dosage: 600 MG, SINGLE
     Route: 042
     Dates: start: 20120411, end: 20120411
  3. SOLIRIS [Suspect]
     Active Substance: ECULIZUMAB
     Dosage: 900 MG, SINGLE
     Route: 042
     Dates: start: 20120523, end: 20120523
  4. MULTIVITAMINS PLUS IRON [Concomitant]
     Dosage: UNK, QD
     Route: 048
  5. ASPIRIN. [Concomitant]
     Active Substance: ASPIRIN
     Dosage: 81 MG, QD
     Route: 048
  6. COUMADIN [Concomitant]
     Active Substance: WARFARIN SODIUM
     Dosage: 5 MG, QD
  7. MULTIVITAMIN [Concomitant]
     Active Substance: VITAMINS
     Dosage: UNK, QD
     Route: 048
  8. AMBIEN [Concomitant]
     Active Substance: ZOLPIDEM TARTRATE
     Dosage: UNK, QD
     Route: 048
  9. PREDNISONE. [Concomitant]
     Active Substance: PREDNISONE
     Dosage: 60 MG, QD
     Route: 048
  10. SOLIRIS [Suspect]
     Active Substance: ECULIZUMAB
     Indication: PAROXYSMAL NOCTURNAL HAEMOGLOBINURIA
     Dosage: 600 MG, SINGLE
     Route: 042
     Dates: start: 20120329, end: 20120329
  11. LANOXIN [Concomitant]
     Active Substance: DIGOXIN
     Dosage: 0.125 MG, QD
     Route: 048
  12. LISINOPRIL. [Concomitant]
     Active Substance: LISINOPRIL
     Dosage: 10 MG, BID
     Route: 048
  13. METOPROLOL [Concomitant]
     Active Substance: METOPROLOL
     Dosage: 12.5 MG, QD
     Route: 048
  14. SOLIRIS [Suspect]
     Active Substance: ECULIZUMAB
     Dosage: 900 MG, SINGLE
     Route: 042
     Dates: start: 20120425, end: 20120425
  15. SOLIRIS [Suspect]
     Active Substance: ECULIZUMAB
     Dosage: 600 MG, SINGLE
     Route: 042
     Dates: start: 20120418, end: 20120418
  16. SOLIRIS [Suspect]
     Active Substance: ECULIZUMAB
     Dosage: 900 MG, SINGLE
     Route: 042
     Dates: start: 20120509, end: 20120509

REACTIONS (5)
  - Gait disturbance [Unknown]
  - Asthenia [Not Recovered/Not Resolved]
  - Dehydration [Unknown]
  - Muscular weakness [Unknown]
  - Fatigue [Not Recovered/Not Resolved]
